FAERS Safety Report 13527834 (Version 2)
Quarter: 2017Q2

REPORT INFORMATION
  Report Type: Spontaneous
  Country: US (occurrence: US)
  Receive Date: 20170509
  Receipt Date: 20170515
  Transmission Date: 20170830
  Serious: No
  Sender: FDA-Public Use
  Company Number: US-PFIZER INC-2017197601

PATIENT
  Age: 71 Year
  Sex: Female
  Weight: 82.55 kg

DRUGS (1)
  1. NORPACE CR [Suspect]
     Active Substance: DISOPYRAMIDE PHOSPHATE
     Indication: HYPOTENSION
     Dosage: 150 MG, UNK (150MG ONE CAPSULE BY MOUTH EVERY 12 HOURS)
     Route: 048

REACTIONS (1)
  - Product use in unapproved indication [Unknown]
